FAERS Safety Report 6523617-7 (Version None)
Quarter: 2009Q4

REPORT INFORMATION
  Report Type: 
  Country: None (occurrence: None)
  Receive Date: 20091231
  Receipt Date: 20091228
  Transmission Date: 20100525
  Serious: Yes (Hospitalization)
  Sender: FDA-Public Use
  Company Number: PHHO2009DK14649

PATIENT
  Sex: Female
  Weight: 71 kg

DRUGS (2)
  1. CGS 20267 T30748+TAB [Suspect]
     Indication: BREAST CANCER
     Dosage: 2.5 MG, QD
     Route: 048
     Dates: start: 20071013
  2. TAMOXIFEN COMP-TAM+ [Suspect]
     Indication: BREAST CANCER
     Dosage: UNK
     Dates: start: 20051104, end: 20071113

REACTIONS (3)
  - FALL [None]
  - OSTEOSYNTHESIS [None]
  - RADIUS FRACTURE [None]
